FAERS Safety Report 15105488 (Version 2)
Quarter: 2018Q3

REPORT INFORMATION
  Report Type: Spontaneous
  Country: JP (occurrence: JP)
  Receive Date: 20180704
  Receipt Date: 20180706
  Transmission Date: 20181010
  Serious: Yes (Death, Other)
  Sender: FDA-Public Use
  Company Number: JP-ROCHE-2148810

PATIENT
  Age: 80 Year
  Sex: Female

DRUGS (3)
  1. XELODA [Suspect]
     Active Substance: CAPECITABINE
     Indication: APPENDIX CANCER
     Dosage: DOSAGE IS UNCERTAIN. ?ADMINISTRATION PERIOD: 5 COURSE
     Route: 048
  2. OXALIPLATIN. [Concomitant]
     Active Substance: OXALIPLATIN
     Indication: APPENDIX CANCER
     Dosage: DOSAGE IS UNCERTAIN. ?ADMINISTRATION PERIOD: 5 COURSE
     Route: 041
  3. AVASTIN [Suspect]
     Active Substance: BEVACIZUMAB
     Indication: APPENDIX CANCER
     Dosage: DOSAGE IS UNCERTAIN. ?ADMINISTRATION PERIOD: 5 COURSE
     Route: 041

REACTIONS (5)
  - Urinary tract infection [Unknown]
  - Off label use [Unknown]
  - Disease progression [Fatal]
  - Product use in unapproved indication [Unknown]
  - Pulmonary artery thrombosis [Unknown]
